FAERS Safety Report 7623066-4 (Version None)
Quarter: 2011Q3

REPORT INFORMATION
  Report Type: 
  Country: None (occurrence: None)
  Receive Date: 20110720
  Receipt Date: 20110714
  Transmission Date: 20111222
  Serious: Yes (Other)
  Sender: FDA-Public Use
  Company Number: US-SANOFI-AVENTIS-2011SA045759

PATIENT
  Sex: Female

DRUGS (3)
  1. AMBIEN CR [Suspect]
     Indication: SLEEP DISORDER
     Route: 048
  2. AMBIEN [Suspect]
     Indication: SLEEP DISORDER
     Route: 048
  3. ZOLPIDEM TARTRATE [Suspect]
     Indication: SLEEP DISORDER
     Route: 048
     Dates: end: 20110101

REACTIONS (3)
  - PAIN [None]
  - MENTAL DISORDER [None]
  - BREAST CANCER [None]
